FAERS Safety Report 7361609-9 (Version None)
Quarter: 2011Q1

REPORT INFORMATION
  Report Type: 
  Country: None (occurrence: None)
  Receive Date: 20110315
  Receipt Date: 20110315
  Transmission Date: 20110831
  Serious: Yes (Hospitalization, Other)
  Sender: FDA-Public Use
  Company Number: None

PATIENT
  Sex: Male
  Weight: 22.6 kg

DRUGS (1)
  1. AMOXICILLIN [Suspect]
     Indication: UPPER RESPIRATORY TRACT INFECTION
     Dosage: TWICE DAILY PO
     Route: 048
     Dates: start: 20110117, end: 20110126

REACTIONS (6)
  - ERYTHEMA [None]
  - PRURITUS [None]
  - PYREXIA [None]
  - LEUKOCYTOCLASTIC VASCULITIS [None]
  - PSYCHOMOTOR HYPERACTIVITY [None]
  - RASH [None]
